FAERS Safety Report 9031863 (Version 1)
Quarter: 2013Q1

REPORT INFORMATION
  Report Type: Spontaneous
  Country: US (occurrence: US)
  Receive Date: 20130124
  Receipt Date: 20130124
  Transmission Date: 20140127
  Serious: Yes (Other)
  Sender: FDA-Public Use
  Company Number: US-ELI_LILLY_AND_COMPANY-US201301004341

PATIENT
  Sex: Female

DRUGS (22)
  1. EVISTA [Suspect]
     Indication: OSTEOPENIA
     Dosage: 60 MG, QD
     Dates: start: 20001030, end: 20120203
  2. TARKA [Concomitant]
  3. DIAZIDE [Concomitant]
  4. TRIAMTEREEN/HYDROCHLOORTHIAZIDE A [Concomitant]
  5. GLIPIZIDE [Concomitant]
  6. SYSTANE [Concomitant]
  7. RESTASIS [Concomitant]
  8. METRONIDAZOL [Concomitant]
  9. FINACEA [Concomitant]
  10. VANIQA [Concomitant]
  11. CITRACAL + D [Concomitant]
  12. VITAMIN D3 [Concomitant]
  13. PRAVASTATIN [Concomitant]
  14. VESICARE [Concomitant]
  15. JANUVIA [Concomitant]
     Indication: TYPE 2 DIABETES MELLITUS
  16. THERATEARS NUTRITION [Concomitant]
  17. PATANASE [Concomitant]
     Indication: HYPERSENSITIVITY
  18. ARIMIDEX [Concomitant]
  19. REPLENS [Concomitant]
  20. LEVOCETIRIZINE [Concomitant]
  21. PREMARIN VAGINAL CREAM [Concomitant]
  22. LATANOPROST [Concomitant]
     Indication: GLAUCOMA

REACTIONS (5)
  - Breast neoplasm [Unknown]
  - Type 2 diabetes mellitus [Unknown]
  - Glaucoma [Unknown]
  - Dry eye [Unknown]
  - Hypersensitivity [Unknown]
